FAERS Safety Report 7476218-0 (Version None)
Quarter: 2011Q2

REPORT INFORMATION
  Report Type: 
  Country: None (occurrence: None)
  Receive Date: 20110512
  Receipt Date: 20110503
  Transmission Date: 20111010
  Serious: Yes (Hospitalization)
  Sender: FDA-Public Use
  Company Number: PHHY2011US37873

PATIENT
  Sex: Male

DRUGS (1)
  1. TASIGNA [Suspect]
     Indication: CHRONIC MYELOID LEUKAEMIA
     Dosage: 300 MG, BID
     Route: 048
     Dates: start: 20110401, end: 20110407

REACTIONS (5)
  - EATING DISORDER [None]
  - BLOOD SODIUM ABNORMAL [None]
  - FLUID RETENTION [None]
  - ABDOMINAL DISCOMFORT [None]
  - ASTHENIA [None]
